FAERS Safety Report 16057983 (Version 1)
Quarter: 2019Q1

REPORT INFORMATION
  Report Type: Spontaneous
  Country: IN (occurrence: IN)
  Receive Date: 20190311
  Receipt Date: 20190311
  Transmission Date: 20190418
  Serious: Yes (Other)
  Sender: FDA-Public Use
  Company Number: IN-ROCHE-2280826

PATIENT
  Age: 54 Year
  Sex: Male

DRUGS (1)
  1. ACCENTRIX [Suspect]
     Active Substance: RANIBIZUMAB
     Indication: DIABETIC RETINAL OEDEMA
     Route: 065
     Dates: start: 20190221

REACTIONS (2)
  - Vitritis [Unknown]
  - Visual impairment [Unknown]

NARRATIVE: CASE EVENT DATE: 20190223
